FAERS Safety Report 4650346-7 (Version None)
Quarter: 2005Q2

REPORT INFORMATION
  Report Type: 
  Country: None (occurrence: None)
  Receive Date: 20050428
  Receipt Date: 20050415
  Transmission Date: 20051028
  Serious: Yes (Hospitalization, Other)
  Sender: FDA-Public Use
  Company Number: 2005060739

PATIENT
  Age: 77 Year
  Sex: Female
  Weight: 61.2356 kg

DRUGS (11)
  1. BEXTRA [Suspect]
     Indication: ARTHRITIS
     Dosage: 20 MG (20 MG, 1 IN 1 D)
  2. PENTOXIFYLLINE [Concomitant]
  3. INSULIN [Concomitant]
  4. METOPROLOL [Concomitant]
  5. TORSEMIDE [Concomitant]
  6. LISINOPRIL [Concomitant]
  7. CETIRIZINE HCL [Concomitant]
  8. ATORVASTATIN [Concomitant]
  9. NIFEDIPINE [Concomitant]
  10. ACETYL SALICYLIC ACID USP BAT [Concomitant]
  11. CALCIUM GLUCONATE [Concomitant]

REACTIONS (5)
  - BONE PAIN [None]
  - INTERVERTEBRAL DISC PROTRUSION [None]
  - NAIL INFECTION [None]
  - ONYCHOMYCOSIS [None]
  - SCIATIC NERVE INJURY [None]
